FAERS Safety Report 26130475 (Version 1)
Quarter: 2025Q4

REPORT INFORMATION
  Report Type: Spontaneous
  Country: CN (occurrence: CN)
  Receive Date: 20251208
  Receipt Date: 20251208
  Transmission Date: 20260118
  Serious: Yes (Other)
  Sender: Kenvue
  Company Number: CN-KENVUE-20251200746

PATIENT
  Age: 5 Year
  Weight: 18 kg

DRUGS (1)
  1. CHILDRENS MOTRIN [Suspect]
     Active Substance: IBUPROFEN
     Indication: Pyrexia
     Dosage: 3 MILLILITER, SINGLE

REACTIONS (2)
  - Off label use [Unknown]
  - Drug hypersensitivity [Recovering/Resolving]
